FAERS Safety Report 9935608 (Version 1)
Quarter: 2014Q1

REPORT INFORMATION
  Report Type: Report from Study
  Country: IT (occurrence: IT)
  Receive Date: 20140228
  Receipt Date: 20140228
  Transmission Date: 20141002
  Serious: Yes (Other)
  Sender: FDA-Public Use
  Company Number: IT-BAXTER-2014BAX010306

PATIENT
  Age: 33 Week
  Sex: Male

DRUGS (4)
  1. KIOVIG 100 MG/ML SOLUTION FOR INFUSION [Suspect]
     Indication: HEART BLOCK CONGENITAL
     Dosage: 1 G/KG
     Route: 064
  2. KIOVIG 100 MG/ML SOLUTION FOR INFUSION [Suspect]
     Indication: OFF LABEL USE
     Dosage: 1 G/KG 14 HOURS AFTER BIRTH
     Route: 042
  3. KIOVIG 100 MG/ML SOLUTION FOR INFUSION [Suspect]
     Dosage: 1 G/KG
     Route: 042
  4. BETAMETHASONE [Suspect]
     Indication: HEART BLOCK CONGENITAL
     Route: 064

REACTIONS (3)
  - Foetal exposure during pregnancy [Recovered/Resolved]
  - Foetal growth restriction [Recovered/Resolved]
  - Oligohydramnios [Recovered/Resolved]
